FAERS Safety Report 17699773 (Version 2)
Quarter: 2020Q2

REPORT INFORMATION
  Report Type: Spontaneous
  Country: US (occurrence: US)
  Receive Date: 20200423
  Receipt Date: 20200602
  Transmission Date: 20200714
  Serious: Yes (Hospitalization, Other)
  Sender: FDA-Public Use
  Company Number: US-PURDUE-USA-2020-0152003

PATIENT
  Sex: Male
  Weight: 62.59 kg

DRUGS (2)
  1. MORPHINE SULFATE (SIMILAR TO NDA 19-516) [Suspect]
     Active Substance: MORPHINE SULFATE
     Indication: PAIN
     Dosage: 630 MG, DAILY
     Route: 048
     Dates: start: 1994
  2. OXYCONTIN [Suspect]
     Active Substance: OXYCODONE HYDROCHLORIDE
     Indication: PAIN
     Dosage: 2 X 80 MG, DAILY
     Route: 048
     Dates: start: 1994

REACTIONS (7)
  - Quality of life decreased [Unknown]
  - Drug dependence [Not Recovered/Not Resolved]
  - Myocardial infarction [Unknown]
  - Anxiety [Not Recovered/Not Resolved]
  - Depression [Not Recovered/Not Resolved]
  - Malaise [Unknown]
  - Nervousness [Unknown]

NARRATIVE: CASE EVENT DATE: 2000
